FAERS Safety Report 20291420 (Version 1)
Quarter: 2022Q1

REPORT INFORMATION
  Report Type: Spontaneous
  Country: US (occurrence: None)
  Receive Date: 20220103
  Receipt Date: 20220103
  Transmission Date: 20220423
  Serious: Yes (Hospitalization)
  Sender: FDA-Public Use
  Company Number: None

PATIENT
  Sex: Male

DRUGS (5)
  1. BOTOX [Suspect]
     Active Substance: ONABOTULINUMTOXINA
     Indication: Migraine
     Dosage: OTHER FREQUENCY : EVERY 90 DAYS; INJECT  155 UNITS INTO  THE MUSCLE OF HEAD AND NECK EVERY 90 DAYS?
     Route: 030
     Dates: start: 20210414
  2. B12 CAP [Concomitant]
  3. MAX OXIDE TAB [Concomitant]
  4. NAPROXEN TAB [Concomitant]
  5. ZOFRAN TAB [Concomitant]

REACTIONS (1)
  - Hospitalisation [None]
